FAERS Safety Report 4483372-1 (Version None)
Quarter: 2004Q4

REPORT INFORMATION
  Report Type: 
  Country: None (occurrence: None)
  Receive Date: 20041020
  Receipt Date: 20041004
  Transmission Date: 20050328
  Serious: Yes (Other)
  Sender: FDA-Public Use
  Company Number: FR_041004923

PATIENT
  Age: 78 Year
  Sex: Female

DRUGS (3)
  1. FORTEO [Suspect]
     Indication: OSTEOPOROSIS
     Dosage: 20 UG DAY
     Dates: start: 20040927
  2. VITAMIN D [Concomitant]
  3. CALCIDOSE (CALCIUM CARBONATE) [Concomitant]

REACTIONS (2)
  - ASTHENIA [None]
  - HYPERCALCAEMIA [None]
